FAERS Safety Report 7398039-X (Version None)
Quarter: 2011Q2

REPORT INFORMATION
  Report Type: 
  Country: None (occurrence: None)
  Receive Date: 20110406
  Receipt Date: 20110329
  Transmission Date: 20111010
  Serious: Yes (Hospitalization, Other)
  Sender: FDA-Public Use
  Company Number: US-AMGEN-USASP2011016839

PATIENT
  Age: 56 Year
  Sex: Male

DRUGS (3)
  1. ENBREL [Suspect]
     Indication: RHEUMATOID ARTHRITIS
     Dates: start: 20040101, end: 20110316
  2. ENBREL [Suspect]
     Indication: PSORIASIS
  3. ENBREL [Suspect]
     Indication: PSORIATIC ARTHROPATHY

REACTIONS (16)
  - TREMOR [None]
  - NERVOUS SYSTEM DISORDER [None]
  - PNEUMONIA [None]
  - CEREBRAL ATROPHY [None]
  - ATAXIA [None]
  - BALANCE DISORDER [None]
  - VISUAL IMPAIRMENT [None]
  - GAIT DISTURBANCE [None]
  - DIPLOPIA [None]
  - DYSSTASIA [None]
  - VISION BLURRED [None]
  - DYSGRAPHIA [None]
  - ARTHRALGIA [None]
  - SARCOMA [None]
  - DIZZINESS [None]
  - DYSARTHRIA [None]
